FAERS Safety Report 8566325 (Version 2)
Quarter: 2012Q4

REPORT INFORMATION
  Report Type: 
  Country: ES (occurrence: ES)
  Receive Date: 20120517
  Receipt Date: 20120906
  Transmission Date: 20130627
  Serious: Yes (Hospitalization)
  Sender: FDA-Public Use
  Company Number: PHHY2012ES040882

PATIENT
  Age: 34 Year
  Sex: Female

DRUGS (3)
  1. IMATINIB [Suspect]
     Indication: CHRONIC MYELOID LEUKAEMIA
     Dosage: 400 mg, daily
  2. UNSPECIFIED INGREDIENT [Interacting]
     Indication: DYSMENORRHOEA
     Dosage: UNK
  3. IRON SUPPLEMENTS [Concomitant]
     Indication: DYSMENORRHOEA

REACTIONS (13)
  - Encephalopathy [Recovering/Resolving]
  - Drug interaction [Recovering/Resolving]
  - Hepatic atrophy [Recovering/Resolving]
  - Acute hepatic failure [Recovering/Resolving]
  - Hepatitis fulminant [Recovering/Resolving]
  - Faeces pale [Recovering/Resolving]
  - Asthenia [Recovering/Resolving]
  - Nausea [Recovering/Resolving]
  - Vomiting [Recovering/Resolving]
  - Chromaturia [Recovering/Resolving]
  - Hepatic necrosis [Recovering/Resolving]
  - Urine bilirubin increased [Unknown]
  - Drug level increased [Unknown]
